FAERS Safety Report 5096927-0 (Version None)
Quarter: 2006Q3

REPORT INFORMATION
  Report Type: 
  Country: None (occurrence: None)
  Receive Date: 20060831
  Receipt Date: 20060825
  Transmission Date: 20061208
  Serious: Yes (Other)
  Sender: FDA-Public Use
  Company Number: 430030M06USA

PATIENT
  Age: 36 Year
  Sex: Male
  Weight: 79.3795 kg

DRUGS (1)
  1. NOVANTRONE [Suspect]
     Indication: MULTIPLE SCLEROSIS
     Dosage: 9 MG/M2, 1 IN 3 MONTHS, INTRAVENOUS  (NOT OTHERWISE SPECIFIED)

REACTIONS (4)
  - ADMINISTRATION SITE REACTION [None]
  - DEEP VEIN THROMBOSIS [None]
  - INFUSION RELATED REACTION [None]
  - MEDICAL DEVICE COMPLICATION [None]
